FAERS Safety Report 7974912-6 (Version None)
Quarter: 2011Q4

REPORT INFORMATION
  Report Type: 
  Country: None (occurrence: None)
  Receive Date: 20111213
  Receipt Date: 20111020
  Transmission Date: 20120403
  Serious: No
  Sender: FDA-Public Use
  Company Number: US-AMGEN-USASP2011054430

PATIENT
  Age: 52 Year
  Sex: Female

DRUGS (1)
  1. ENBREL [Suspect]
     Indication: PSORIATIC ARTHROPATHY
     Dosage: 50 MG, 2 TIMES/WK
     Dates: start: 20110901, end: 20111001

REACTIONS (5)
  - PYREXIA [None]
  - INFLUENZA LIKE ILLNESS [None]
  - FATIGUE [None]
  - PAIN [None]
  - ASTHENIA [None]
